FAERS Safety Report 23560662 (Version 2)
Quarter: 2024Q2

REPORT INFORMATION
  Report Type: Spontaneous
  Country: GB (occurrence: GB)
  Receive Date: 20240223
  Receipt Date: 20240402
  Transmission Date: 20240716
  Serious: Yes (Other)
  Sender: FDA-Public Use
  Company Number: GB-LUNDBECK-DKLU3073787

PATIENT
  Age: 79 Year
  Sex: Female

DRUGS (2)
  1. CITALOPRAM HYDROBROMIDE [Suspect]
     Active Substance: CITALOPRAM HYDROBROMIDE
     Indication: Product used for unknown indication
     Route: 065
  2. CITALOPRAM [Concomitant]
     Active Substance: CITALOPRAM\CITALOPRAM HYDROBROMIDE
     Indication: Product used for unknown indication
     Route: 065

REACTIONS (12)
  - Dementia [Unknown]
  - Malaise [Unknown]
  - Psychomotor hyperactivity [Unknown]
  - Treatment noncompliance [Unknown]
  - Sensory processing sensitivity [Unknown]
  - Product substitution issue [Unknown]
  - Lip blister [Unknown]
  - Memory impairment [Unknown]
  - Anxiety [Unknown]
  - Thinking abnormal [Unknown]
  - Discomfort [Unknown]
  - Confusional state [Unknown]
